FAERS Safety Report 8237000-X (Version None)
Quarter: 2012Q1

REPORT INFORMATION
  Report Type: 
  Country: None (occurrence: None)
  Receive Date: 20120327
  Receipt Date: 20120322
  Transmission Date: 20120608
  Serious: Yes (Other)
  Sender: FDA-Public Use
  Company Number: PHHY2012SE025000

PATIENT
  Sex: Male

DRUGS (1)
  1. TEGRETOL [Suspect]
     Dates: end: 20120120

REACTIONS (1)
  - HEPATIC NECROSIS [None]
